FAERS Safety Report 7573779-8 (Version None)
Quarter: 2011Q2

REPORT INFORMATION
  Report Type: 
  Country: None (occurrence: None)
  Receive Date: 20110627
  Receipt Date: 20110620
  Transmission Date: 20111010
  Serious: Yes (Disabling)
  Sender: FDA-Public Use
  Company Number: MX-ROCHE-785155

PATIENT
  Sex: Female
  Weight: 59 kg

DRUGS (4)
  1. ACETYLSALICYLIC ACID SRT [Concomitant]
     Indication: PAIN PROPHYLAXIS
     Route: 048
     Dates: start: 20090101, end: 20110615
  2. BONIVA [Suspect]
     Indication: OSTEOPOROSIS
     Route: 048
     Dates: start: 20070101
  3. SIMVASTATIN [Concomitant]
     Dosage: REPORTED AS EXETIMIBE-SIMVASTATIN/VITORYN DOSE; 10/20 MG, FREQUENCY: QD
     Route: 048
     Dates: start: 20090101, end: 20110615
  4. CALTRATE 600 + D [Concomitant]
     Indication: OSTEOPOROSIS
     Dosage: FREQUENCY: QD
     Route: 048
     Dates: start: 20070101, end: 20110615

REACTIONS (3)
  - HEADACHE [None]
  - PATELLA FRACTURE [None]
  - URTICARIA [None]
